FAERS Safety Report 7047883-7 (Version None)
Quarter: 2010Q4

REPORT INFORMATION
  Report Type: 
  Country: None (occurrence: None)
  Receive Date: 20101015
  Receipt Date: 20100903
  Transmission Date: 20110411
  Serious: Yes (Life-Threatening, Disabling, Other)
  Sender: FDA-Public Use
  Company Number: US-BAXTER-2010BH000695

PATIENT
  Age: 39 Year
  Sex: Female
  Weight: 61 kg

DRUGS (30)
  1. HEPARIN SODIUM INJECTION [Suspect]
     Indication: THROMBECTOMY
     Route: 042
     Dates: start: 20080109, end: 20080109
  2. HEPARIN SODIUM INJECTION [Suspect]
     Indication: CATHETERISATION CARDIAC
     Route: 042
     Dates: start: 20080109, end: 20080109
  3. HEPARIN SODIUM INJECTION [Suspect]
     Indication: ARTERIOGRAM CORONARY
     Route: 042
     Dates: start: 20080109, end: 20080109
  4. HEPARIN SODIUM INJECTION [Suspect]
     Indication: CHEST PAIN
     Route: 042
     Dates: start: 20080109, end: 20080109
  5. HEPARIN SODIUM INJECTION [Suspect]
     Dosage: DOSE UNIT:UNITS PER KILOGRAM
     Route: 040
     Dates: start: 20071205, end: 20071205
  6. HEPARIN SODIUM INJECTION [Suspect]
     Dosage: DOSE UNIT:UNITS PER KILOGRAM
     Route: 040
     Dates: start: 20071205, end: 20071205
  7. HEPARIN SODIUM INJECTION [Suspect]
     Dosage: DOSE UNIT:UNITS PER KILOGRAM
     Route: 040
     Dates: start: 20071205, end: 20071205
  8. HEPARIN SODIUM INJECTION [Suspect]
     Dosage: DOSE UNIT:UNITS PER KILOGRAM
     Route: 040
     Dates: start: 20071205, end: 20071205
  9. HEPARIN SODIUM 5,000 UNITS IN DEXTROSE 5% [Suspect]
     Indication: CATHETERISATION CARDIAC
     Route: 041
     Dates: start: 20071205, end: 20071205
  10. HEPARIN SODIUM 5,000 UNITS IN DEXTROSE 5% [Suspect]
     Indication: ARTERIOGRAM CORONARY
     Route: 041
     Dates: start: 20071205, end: 20071205
  11. HEPARIN SODIUM 5,000 UNITS IN DEXTROSE 5% [Suspect]
     Indication: CHEST PAIN
     Route: 041
     Dates: start: 20071205, end: 20071205
  12. PROTAMINE SULFATE [Suspect]
     Indication: THROMBECTOMY
     Route: 042
     Dates: start: 20080109, end: 20080109
  13. EFFEXOR [Concomitant]
     Indication: PRODUCT USED FOR UNKNOWN INDICATION
     Route: 065
     Dates: start: 20080701
  14. LORAZEPAM [Concomitant]
     Indication: PRODUCT USED FOR UNKNOWN INDICATION
     Route: 065
     Dates: start: 20080701
  15. LEVOTHYROXINE SODIUM [Concomitant]
     Indication: HYPOTHYROIDISM
     Route: 065
     Dates: start: 20080701
  16. ONDANSETRON [Concomitant]
     Indication: PRODUCT USED FOR UNKNOWN INDICATION
     Route: 042
  17. SODIUM CHLORIDE [Concomitant]
     Indication: PRODUCT USED FOR UNKNOWN INDICATION
     Route: 042
  18. NITRO-BID OINTMENT [Concomitant]
     Indication: PRODUCT USED FOR UNKNOWN INDICATION
     Route: 061
  19. METOPROLOL [Concomitant]
     Indication: PRODUCT USED FOR UNKNOWN INDICATION
     Route: 048
  20. ASPIRIN [Concomitant]
     Indication: PRODUCT USED FOR UNKNOWN INDICATION
     Route: 048
  21. VENLAFAXINE [Concomitant]
     Indication: PRODUCT USED FOR UNKNOWN INDICATION
     Route: 048
  22. ATORVASTATIN [Concomitant]
     Indication: PRODUCT USED FOR UNKNOWN INDICATION
     Route: 048
  23. POTASSIUM CHLORIDE [Concomitant]
     Indication: PRODUCT USED FOR UNKNOWN INDICATION
     Route: 048
  24. DIPHENHYDRAMINE [Concomitant]
     Indication: PRODUCT USED FOR UNKNOWN INDICATION
     Route: 048
  25. IBUPROFEN [Concomitant]
     Indication: PRODUCT USED FOR UNKNOWN INDICATION
     Route: 048
  26. CEFAZOLIN [Concomitant]
     Indication: PRODUCT USED FOR UNKNOWN INDICATION
     Route: 042
  27. FENTANYL [Concomitant]
     Indication: PRODUCT USED FOR UNKNOWN INDICATION
     Route: 042
  28. INSULIN [Concomitant]
     Indication: PRODUCT USED FOR UNKNOWN INDICATION
     Route: 058
  29. OXYCODONE HCL [Concomitant]
     Indication: PRODUCT USED FOR UNKNOWN INDICATION
     Route: 048
  30. NITROGLYCERIN [Concomitant]
     Indication: PRODUCT USED FOR UNKNOWN INDICATION
     Route: 060

REACTIONS (9)
  - ANAPHYLACTIC REACTION [None]
  - ARTERIAL THROMBOSIS LIMB [None]
  - BLOOD PRESSURE DECREASED [None]
  - EMOTIONAL DISTRESS [None]
  - GAIT DISTURBANCE [None]
  - HYPERTENSION [None]
  - MALAISE [None]
  - RASH GENERALISED [None]
  - UPPER RESPIRATORY TRACT INFECTION [None]
